FAERS Safety Report 9956103 (Version 1)
Quarter: 2014Q1

REPORT INFORMATION
  Report Type: Report from Study
  Country: US (occurrence: US)
  Receive Date: 20140304
  Receipt Date: 20140304
  Transmission Date: 20141002
  Serious: No
  Sender: FDA-Public Use
  Company Number: US-ABBVIE-13P-163-1090262-00

PATIENT
  Age: 63 Year
  Sex: Male

DRUGS (6)
  1. HUMIRA [Suspect]
     Indication: CROHN^S DISEASE
     Dates: start: 20130424
  2. HUMIRA [Suspect]
  3. ASACOL [Concomitant]
     Indication: CROHN^S DISEASE
  4. AZATHIOPRINE [Concomitant]
     Indication: CROHN^S DISEASE
     Dosage: 4 A DAY
  5. CITALOPRAM [Concomitant]
     Indication: DEPRESSION
     Dosage: .5 TABLET PER DAY
  6. TAMSULOSIN [Concomitant]
     Indication: PROSTATOMEGALY
     Dosage: 2 A DAY

REACTIONS (4)
  - Flatulence [Not Recovered/Not Resolved]
  - Diarrhoea [Not Recovered/Not Resolved]
  - Abdominal pain upper [Not Recovered/Not Resolved]
  - Epigastric discomfort [Not Recovered/Not Resolved]
